FAERS Safety Report 18497106 (Version 1)
Quarter: 2020Q4

REPORT INFORMATION
  Report Type: Other
  Country: DE (occurrence: DE)
  Receive Date: 20201112
  Receipt Date: 20201112
  Transmission Date: 20210114
  Serious: Yes (Other)
  Sender: FDA-Public Use
  Company Number: DE-VALIDUS PHARMACEUTICALS LLC-DE-2020VAL000882

PATIENT

DRUGS (4)
  1. PREDNISOLON                        /00016201/ [Concomitant]
     Active Substance: PREDNISOLONE
     Indication: PRODUCT USED FOR UNKNOWN INDICATION
     Dosage: UNK
     Dates: start: 20201006, end: 20201015
  2. PANTOPRAZOL                        /01263201/ [Concomitant]
     Active Substance: PANTOPRAZOLE
     Indication: PRODUCT USED FOR UNKNOWN INDICATION
     Dosage: UNK
     Dates: start: 20201006, end: 20201015
  3. ATORVASTATIN [Suspect]
     Active Substance: ATORVASTATIN
     Indication: OPTIC ISCHAEMIC NEUROPATHY
     Dosage: 20 MG, QD
     Route: 048
     Dates: start: 20201006, end: 20201010
  4. TRENTAL [Suspect]
     Active Substance: PENTOXIFYLLINE
     Indication: OPTIC ISCHAEMIC NEUROPATHY
     Dosage: 400 MG, Q8H
     Route: 048
     Dates: start: 20201006, end: 20201010

REACTIONS (12)
  - Restlessness [Recovering/Resolving]
  - Back pain [Recovering/Resolving]
  - Headache [Recovering/Resolving]
  - Feeling hot [Recovering/Resolving]
  - Sense of oppression [Recovering/Resolving]
  - Anxiety [Recovering/Resolving]
  - Nausea [Recovering/Resolving]
  - Insomnia [Recovering/Resolving]
  - Angina pectoris [Recovering/Resolving]
  - Dysgeusia [Recovering/Resolving]
  - Chest pain [Recovering/Resolving]
  - Flushing [Recovering/Resolving]

NARRATIVE: CASE EVENT DATE: 20201008
